FAERS Safety Report 14574066 (Version 1)
Quarter: 2018Q1

REPORT INFORMATION
  Report Type: Report from Study
  Country: BR (occurrence: BR)
  Receive Date: 20180226
  Receipt Date: 20180226
  Transmission Date: 20180509
  Serious: Yes (Other)
  Sender: FDA-Public Use
  Company Number: BR-ROCHE-2078688

PATIENT
  Sex: Female
  Weight: 72 kg

DRUGS (10)
  1. XOLAIR [Suspect]
     Active Substance: OMALIZUMAB
     Indication: ASTHMA
     Dosage: 3 DF, (3 AMPOULES EVERY 15 DAYS)
     Route: 058
     Dates: start: 200710
  2. XOLAIR [Suspect]
     Active Substance: OMALIZUMAB
     Route: 065
  3. LEVOTHYROXINE. [Concomitant]
     Active Substance: LEVOTHYROXINE
     Indication: THYROID DISORDER
     Dosage: FOR A LONG TIME
     Route: 048
  4. METFORMIN [Concomitant]
     Active Substance: METFORMIN HYDROCHLORIDE
     Indication: DIABETES MELLITUS
     Dosage: FOR A LONG TIME
     Route: 048
  5. FUROSEMIDE. [Concomitant]
     Active Substance: FUROSEMIDE
     Indication: HYPERTENSION
     Dosage: FOR A LONG TIME
     Route: 048
  6. SIMVASTATIN. [Concomitant]
     Active Substance: SIMVASTATIN
     Indication: HYPERCHOLESTEROLAEMIA
     Route: 048
  7. XOLAIR [Suspect]
     Active Substance: OMALIZUMAB
     Route: 065
  8. XOLAIR [Suspect]
     Active Substance: OMALIZUMAB
     Route: 065
     Dates: start: 20170706
  9. OMEPRAZOLE. [Concomitant]
     Active Substance: OMEPRAZOLE
     Indication: PROPHYLAXIS
     Dosage: FOR A LONG TIME
     Route: 048
  10. LOSARTAN. [Concomitant]
     Active Substance: LOSARTAN
     Indication: HYPERTENSION
     Route: 048

REACTIONS (15)
  - Seizure [Unknown]
  - Asthma [Recovering/Resolving]
  - Feeling abnormal [Recovering/Resolving]
  - Weight decreased [Unknown]
  - Drug administration error [Unknown]
  - Dyspnoea [Unknown]
  - Lower respiratory tract infection bacterial [Recovered/Resolved]
  - Sensitivity to weather change [Unknown]
  - Labyrinthitis [Recovered/Resolved]
  - Drug ineffective [Unknown]
  - Fatigue [Unknown]
  - Asthmatic crisis [Recovering/Resolving]
  - Body height decreased [Unknown]
  - Cough [Unknown]
  - Malaise [Recovering/Resolving]
